FAERS Safety Report 8113622-1 (Version None)
Quarter: 2011Q4

REPORT INFORMATION
  Report Type: 
  Country: None (occurrence: None)
  Receive Date: 20111227
  Receipt Date: 20111018
  Transmission Date: 20120403
  Serious: Yes (Other)
  Sender: FDA-Public Use
  Company Number: PHEH2011US03055

PATIENT
  Age: 38 Year
  Sex: Female
  Weight: 89.3 kg

DRUGS (16)
  1. XANAX [Concomitant]
  2. TRAZODONE HCL [Concomitant]
  3. VITAMIN D [Concomitant]
  4. CALCIUM [Concomitant]
  5. TOPAMAX [Concomitant]
  6. ADDERALL 10 [Concomitant]
  7. PAXIL [Concomitant]
  8. OMEGA-3 FISH OIL - NATURAL (FISH OIL) [Concomitant]
  9. GILENYA [Suspect]
     Indication: MULTIPLE SCLEROSIS
     Dosage: 0.5 MG, QD, ORAL
     Route: 048
     Dates: start: 20110630
  10. GILENYA [Suspect]
     Dosage: 0.5 MG, QOD, ORAL
     Route: 048
  11. GILENYA [Suspect]
     Dosage: 0.5 MG, QD, ORAL
     Route: 048
  12. VITAMIN B COMPLEX CAP [Concomitant]
  13. MULTIVIT (VITAMINS NOS) [Concomitant]
  14. BACLOFEN [Concomitant]
  15. PROAIR HFA (ALBUTEROL SULFATE) INHALATION AEROSOL (SALBUTAMOL SULFATE) [Concomitant]
  16. MAGNESIUM [Concomitant]

REACTIONS (7)
  - MUSCULAR WEAKNESS [None]
  - UPPER RESPIRATORY TRACT INFECTION [None]
  - SINUSITIS [None]
  - ASPARTATE AMINOTRANSFERASE INCREASED [None]
  - ALANINE AMINOTRANSFERASE INCREASED [None]
  - FEELING ABNORMAL [None]
  - LIVER FUNCTION TEST ABNORMAL [None]
